FAERS Safety Report 4360969-0 (Version None)
Quarter: 2004Q2

REPORT INFORMATION
  Report Type: 
  Country: None (occurrence: None)
  Receive Date: 20040517
  Receipt Date: 20040504
  Transmission Date: 20050107
  Serious: Yes (Death)
  Sender: FDA-Public Use
  Company Number: 200409052

PATIENT
  Age: 57 Year
  Sex: Male

DRUGS (7)
  1. STREPTASE (STREPTOKINASE) (AVENTIS BEHRING) [Suspect]
     Indication: MYOCARDIAL INFARCTION
     Dosage: 1.5 MIU DAILY IV
     Route: 042
     Dates: start: 20040426, end: 20040426
  2. ASPIRIN [Suspect]
     Indication: MYOCARDIAL INFARCTION
     Dosage: 250 MG DAILY PO
     Route: 048
     Dates: start: 20040426, end: 20040426
  3. ENOXAPARIN OR PLACEBO VS. HEPARIN OR PLACEBO [Suspect]
     Indication: MYOCARDIAL INFARCTION
     Dosage: IV
     Route: 042
     Dates: start: 20040426, end: 20040426
  4. NITROGLYCERIN [Concomitant]
  5. DOPAMINE HCL [Concomitant]
  6. ATROPINE [Concomitant]
  7. ADRENALIN IN OIL INJ [Concomitant]

REACTIONS (4)
  - CARDIO-RESPIRATORY ARREST [None]
  - CYANOSIS [None]
  - ELECTROMECHANICAL DISSOCIATION [None]
  - PULMONARY OEDEMA [None]
